FAERS Safety Report 6520587-2 (Version None)
Quarter: 2009Q4

REPORT INFORMATION
  Report Type: 
  Country: None (occurrence: None)
  Receive Date: 20091229
  Receipt Date: 20091222
  Transmission Date: 20100525
  Serious: Yes (Death)
  Sender: FDA-Public Use
  Company Number: US-CELGENEUS-163-21880-09121867

PATIENT
  Sex: Male

DRUGS (5)
  1. REVLIMID [Suspect]
     Indication: MULTIPLE MYELOMA
     Route: 048
     Dates: start: 20090601, end: 20090701
  2. REVLIMID [Suspect]
     Route: 048
     Dates: start: 20090301, end: 20090501
  3. REVLIMID [Suspect]
     Route: 048
     Dates: start: 20081201, end: 20081201
  4. REVLIMID [Suspect]
     Route: 048
     Dates: start: 20080901, end: 20080901
  5. REVLIMID [Suspect]
     Route: 048
     Dates: start: 20080101, end: 20080401

REACTIONS (1)
  - DEATH [None]
